FAERS Safety Report 14818607 (Version 5)
Quarter: 2018Q2

REPORT INFORMATION
  Report Type: Spontaneous
  Country: US (occurrence: US)
  Receive Date: 20180427
  Receipt Date: 20180522
  Transmission Date: 20180711
  Serious: No
  Sender: FDA-Public Use
  Company Number: US-UNITED THERAPEUTICS-UNT-2018-005859

PATIENT
  Age: 35 Year
  Sex: Male
  Weight: 61.22 kg

DRUGS (4)
  1. WARFARIN [Concomitant]
     Active Substance: WARFARIN
     Indication: PRODUCT USED FOR UNKNOWN INDICATION
     Route: 065
  2. LETAIRIS [Concomitant]
     Active Substance: AMBRISENTAN
     Indication: PRODUCT USED FOR UNKNOWN INDICATION
     Route: 065
  3. REVATIO [Concomitant]
     Active Substance: SILDENAFIL CITRATE
     Indication: PRODUCT USED FOR UNKNOWN INDICATION
     Route: 065
  4. REMODULIN [Suspect]
     Active Substance: TREPROSTINIL
     Indication: PULMONARY ARTERIAL HYPERTENSION
     Dosage: 0.080 ?G/KG, CONTINUING
     Route: 058
     Dates: start: 20130515

REACTIONS (7)
  - Infusion site pain [Unknown]
  - Infusion site haemorrhage [Unknown]
  - Infusion site mass [Not Recovered/Not Resolved]
  - International normalised ratio abnormal [Unknown]
  - Infusion site rash [Unknown]
  - Infusion site discolouration [Not Recovered/Not Resolved]
  - Infusion site swelling [Unknown]

NARRATIVE: CASE EVENT DATE: 20180512
